FAERS Safety Report 8542437-5 (Version None)
Quarter: 2012Q3

REPORT INFORMATION
  Report Type: 
  Country: None (occurrence: None)
  Receive Date: 20120726
  Receipt Date: 20111012
  Transmission Date: 20120928
  Serious: Yes (Hospitalization)
  Sender: FDA-Public Use
  Company Number: US-ASTRAZENECA-2005UW19484

PATIENT
  Age: 84 Year
  Sex: Female

DRUGS (1)
  1. SEROQUEL [Suspect]
     Indication: ORAL DISCOMFORT
     Route: 048
     Dates: start: 20020101

REACTIONS (5)
  - FATIGUE [None]
  - INCREASED APPETITE [None]
  - WEIGHT INCREASED [None]
  - MALAISE [None]
  - DRY MOUTH [None]
